FAERS Safety Report 15495848 (Version 1)
Quarter: 2018Q4

REPORT INFORMATION
  Report Type: Spontaneous
  Country: US (occurrence: US)
  Receive Date: 20181014
  Receipt Date: 20181014
  Transmission Date: 20190205
  Serious: No
  Sender: FDA-Public Use
  Company Number: US-JNJFOC-20180733874

PATIENT
  Sex: Male
  Weight: 108 kg

DRUGS (21)
  1. PRAVASTATIN. [Concomitant]
     Active Substance: PRAVASTATIN
  2. ASPIRIN. [Concomitant]
     Active Substance: ASPIRIN
  3. AZELASTINE. [Concomitant]
     Active Substance: AZELASTINE HYDROCHLORIDE
  4. VITAMIN D3 [Concomitant]
     Active Substance: CHOLECALCIFEROL
  5. VITAMIN B12 [Concomitant]
     Active Substance: CYANOCOBALAMIN
  6. LANTUS [Concomitant]
     Active Substance: INSULIN GLARGINE
     Indication: DIABETES MELLITUS
  7. PREDNISONE. [Concomitant]
     Active Substance: PREDNISONE
  8. LISINOPRIL. [Concomitant]
     Active Substance: LISINOPRIL
  9. OMEPRAZOLE. [Concomitant]
     Active Substance: OMEPRAZOLE
  10. MELOXICAM. [Concomitant]
     Active Substance: MELOXICAM
  11. MAGNESIUM [Concomitant]
     Active Substance: MAGNESIUM
  12. DIPHENHYDRAMINE CITRATE, IBUPROFEN [Concomitant]
     Active Substance: DIPHENHYDRAMINE CITRATE\IBUPROFEN
  13. IMBRUVICA [Suspect]
     Active Substance: IBRUTINIB
     Indication: WALDENSTROM^S MACROGLOBULINAEMIA
     Route: 065
     Dates: start: 20180424
  14. COQ10 [Concomitant]
     Active Substance: UBIDECARENONE
  15. MULTIVITAMINS [Concomitant]
     Active Substance: VITAMINS
  16. TYLENOL [Concomitant]
     Active Substance: ACETAMINOPHEN
  17. HUMALOG [Concomitant]
     Active Substance: INSULIN LISPRO
     Indication: DIABETES MELLITUS
  18. FISH OIL [Concomitant]
     Active Substance: FISH OIL
  19. BISMUTH SUBSALICYLATE. [Concomitant]
     Active Substance: BISMUTH SUBSALICYLATE
  20. LASIX [Concomitant]
     Active Substance: FUROSEMIDE
  21. ALEVE [Concomitant]
     Active Substance: NAPROXEN SODIUM

REACTIONS (10)
  - Dyspnoea [Not Recovered/Not Resolved]
  - Fatigue [Not Recovered/Not Resolved]
  - Vision blurred [Not Recovered/Not Resolved]
  - Memory impairment [Unknown]
  - Rash [Not Recovered/Not Resolved]
  - Confusional state [Not Recovered/Not Resolved]
  - Muscle spasms [Not Recovered/Not Resolved]
  - Nausea [Not Recovered/Not Resolved]
  - Cough [Not Recovered/Not Resolved]
  - Asthenia [Not Recovered/Not Resolved]

NARRATIVE: CASE EVENT DATE: 2018
